FAERS Safety Report 5796428-8 (Version None)
Quarter: 2008Q3

REPORT INFORMATION
  Report Type: 
  Country: None (occurrence: None)
  Receive Date: 20080701
  Receipt Date: 20080617
  Transmission Date: 20090109
  Serious: Yes (Hospitalization, Other)
  Sender: FDA-Public Use
  Company Number: PHEH2008US04582

PATIENT
  Sex: Male
  Weight: 74.376 kg

DRUGS (5)
  1. FOCALIN XR [Suspect]
     Indication: ASPERGER'S DISORDER
     Dosage: 10 MG, QD
     Dates: start: 20071107, end: 20080110
  2. GEODON [Suspect]
     Indication: BIPOLAR DISORDER
     Dosage: 20 MG, TID
     Dates: start: 20080101
  3. GEODON [Suspect]
     Dosage: 80 MG, QD
     Dates: start: 20080101
  4. NEURONTIN [Concomitant]
     Dosage: 300 MG, BID
  5. ZOLOFT [Concomitant]
     Dosage: 150 MG, QD

REACTIONS (5)
  - ANOREXIA [None]
  - BIPOLAR DISORDER [None]
  - MANIA [None]
  - NAUSEA [None]
  - WEIGHT DECREASED [None]
